FAERS Safety Report 7658545-7 (Version None)
Quarter: 2011Q3

REPORT INFORMATION
  Report Type: 
  Country: None (occurrence: None)
  Receive Date: 20110804
  Receipt Date: 20110804
  Transmission Date: 20111222
  Serious: No
  Sender: FDA-Public Use
  Company Number: None

PATIENT
  Sex: Female

DRUGS (1)
  1. GABAPENTIN [Suspect]
     Indication: COMPLEX REGIONAL PAIN SYNDROME
     Dosage: 300MG  1 TID + 3 QHS PO
     Route: 048
     Dates: start: 20110722, end: 20110801

REACTIONS (4)
  - PAIN [None]
  - DRUG INEFFECTIVE [None]
  - ARTHRALGIA [None]
  - INSOMNIA [None]
